FAERS Safety Report 9470209 (Version 1)
Quarter: 2013Q3

REPORT INFORMATION
  Report Type: Spontaneous
  Country: US (occurrence: None)
  Receive Date: 20130820
  Receipt Date: 20130820
  Transmission Date: 20140515
  Serious: No
  Sender: FDA-Public Use
  Company Number: None

PATIENT
  Age: 28 Year
  Sex: Female
  Weight: 72.58 kg

DRUGS (2)
  1. HYDROCODONE/ACETAMINOPHEN [Suspect]
     Indication: PAIN
     Route: 048
     Dates: start: 20130620, end: 20130828
  2. CARISOPRODOL [Suspect]
     Indication: PAIN
     Route: 048
     Dates: start: 20130725, end: 20130728

REACTIONS (10)
  - Hyperhidrosis [None]
  - Flushing [None]
  - Pallor [None]
  - Palpitations [None]
  - Syncope [None]
  - Tinnitus [None]
  - Diarrhoea [None]
  - Pruritus [None]
  - Asthenia [None]
  - Fatigue [None]
